FAERS Safety Report 12634022 (Version 3)
Quarter: 2016Q4

REPORT INFORMATION
  Report Type: Spontaneous
  Country: ES (occurrence: ES)
  Receive Date: 20160808
  Receipt Date: 20161123
  Transmission Date: 20170207
  Serious: Yes (Death, Hospitalization, Other)
  Sender: FDA-Public Use
  Company Number: ES-CELGENEUS-ESP-2016065935

PATIENT
  Age: 52 Year
  Sex: Male

DRUGS (3)
  1. KYPROLIS [Suspect]
     Active Substance: CARFILZOMIB
     Indication: PLASMA CELL MYELOMA
     Route: 065
  2. DEXAMETHASONE. [Concomitant]
     Active Substance: DEXAMETHASONE
     Indication: PLASMA CELL MYELOMA
     Route: 065
  3. REVLIMID [Suspect]
     Active Substance: LENALIDOMIDE
     Indication: PLASMA CELL MYELOMA
     Route: 048

REACTIONS (4)
  - Plasma cell myeloma [Fatal]
  - Pleural effusion [Unknown]
  - Respiratory tract infection [Unknown]
  - Plasmacytoma [Unknown]

NARRATIVE: CASE EVENT DATE: 201607
